FAERS Safety Report 7674898-8 (Version None)
Quarter: 2011Q3

REPORT INFORMATION
  Report Type: 
  Country: None (occurrence: None)
  Receive Date: 20110810
  Receipt Date: 20110728
  Transmission Date: 20111222
  Serious: Yes (Hospitalization, Other)
  Sender: FDA-Public Use
  Company Number: FR-ELI_LILLY_AND_COMPANY-FR201107007488

PATIENT
  Age: 73 Year
  Sex: Male

DRUGS (11)
  1. ZYPREXA [Suspect]
     Indication: BIPOLAR DISORDER
     Dosage: 10 MG, UNK
     Dates: end: 20110605
  2. LASIX [Concomitant]
     Indication: CARDIAC FAILURE
  3. CALCIPARINE [Concomitant]
     Indication: ATRIAL FIBRILLATION
  4. VALPROIC ACID [Concomitant]
     Indication: BIPOLAR DISORDER
  5. ATROVENT [Concomitant]
  6. TADENAN [Concomitant]
  7. PANTOPRAZOLE [Concomitant]
  8. FORLAX [Concomitant]
  9. ATARAX [Concomitant]
  10. CORDARONE [Concomitant]
     Indication: ATRIAL FIBRILLATION
     Dosage: 200 MG, UNK
  11. COUMADIN [Concomitant]
     Indication: ATRIAL FIBRILLATION

REACTIONS (1)
  - TORSADE DE POINTES [None]
